FAERS Safety Report 4741776-3 (Version None)
Quarter: 2005Q3

REPORT INFORMATION
  Report Type: 
  Country: None (occurrence: None)
  Receive Date: 20050801
  Receipt Date: 20050623
  Transmission Date: 20060218
  Serious: No
  Sender: FDA-Public Use
  Company Number: 2005PV000122

PATIENT
  Age: 54 Year
  Sex: Male
  Weight: 117.9352 kg

DRUGS (4)
  1. BYETTA [Suspect]
     Indication: DIABETES MELLITUS NON-INSULIN-DEPENDENT
     Dosage: 5 UG; BID; SC
     Route: 058
     Dates: start: 20050622
  2. HUMULIN 50/50 [Concomitant]
  3. LANTUS [Concomitant]
  4. PREVACID [Concomitant]

REACTIONS (2)
  - ASTHENIA [None]
  - FATIGUE [None]
